FAERS Safety Report 23031446 (Version 1)
Quarter: 2023Q4

REPORT INFORMATION
  Report Type: Other
  Country: CA (occurrence: CA)
  Receive Date: 20231005
  Receipt Date: 20231005
  Transmission Date: 20240110
  Serious: Yes (Other)
  Sender: FDA-Public Use
  Company Number: CA-APOTEX-2023AP014234

PATIENT
  Age: 30 Year
  Sex: Female

DRUGS (1)
  1. DROSPIRENONE\ETHINYL ESTRADIOL [Suspect]
     Active Substance: DROSPIRENONE\ETHINYL ESTRADIOL
     Indication: Contraception
     Dosage: 1 DOSAGE FORM, QD
     Route: 048

REACTIONS (3)
  - Drug intolerance [Recovered/Resolved]
  - Polymenorrhoea [Recovered/Resolved]
  - Intermenstrual bleeding [Recovered/Resolved]
